FAERS Safety Report 16613018 (Version 3)
Quarter: 2020Q3

REPORT INFORMATION
  Report Type: Spontaneous
  Country: US (occurrence: US)
  Receive Date: 20190722
  Receipt Date: 20200811
  Transmission Date: 20201102
  Serious: No
  Sender: FDA-Public Use
  Company Number: US-009507513-1907USA007199

PATIENT
  Age: 75 Year
  Sex: Female

DRUGS (2)
  1. PROVENTIL [Suspect]
     Active Substance: ALBUTEROL
     Dosage: 2 PUFFS 3 TIMES A DAY
     Dates: start: 20200603
  2. PROVENTIL [Suspect]
     Active Substance: ALBUTEROL
     Dosage: 3 PUFFS, QD
     Route: 055
     Dates: start: 2019

REACTIONS (5)
  - Product quality issue [Unknown]
  - Wrong technique in device usage process [Unknown]
  - Product use issue [Unknown]
  - Product dose omission issue [Unknown]
  - No adverse event [Unknown]

NARRATIVE: CASE EVENT DATE: 20200603
